FAERS Safety Report 12365350 (Version 1)
Quarter: 2016Q2

REPORT INFORMATION
  Report Type: Spontaneous
  Country: GB (occurrence: GB)
  Receive Date: 20160513
  Receipt Date: 20160513
  Transmission Date: 20160815
  Serious: Yes (Other)
  Sender: FDA-Public Use
  Company Number: GB-PFIZER INC-2016246651

PATIENT
  Age: 51 Year
  Sex: Female
  Weight: 74 kg

DRUGS (1)
  1. AMLODIPINE BESILATE [Suspect]
     Active Substance: AMLODIPINE BESYLATE
     Indication: HYPERTENSION
     Dosage: 5 MG, IN THE MORNING
     Route: 048
     Dates: start: 20150703, end: 20160403

REACTIONS (4)
  - Madarosis [Recovering/Resolving]
  - Alopecia [Recovering/Resolving]
  - Skin burning sensation [Recovering/Resolving]
  - Pain of skin [Recovering/Resolving]

NARRATIVE: CASE EVENT DATE: 20151101
